FAERS Safety Report 25150122 (Version 10)
Quarter: 2025Q3

REPORT INFORMATION
  Report Type: Report from Study
  Country: CA (occurrence: CA)
  Receive Date: 20250402
  Receipt Date: 20250901
  Transmission Date: 20251020
  Serious: Yes (Hospitalization, Other)
  Sender: TAKEDA
  Company Number: CA-TAKEDA-2025TUS031937

PATIENT
  Sex: Female

DRUGS (15)
  1. VEDOLIZUMAB [Suspect]
     Active Substance: VEDOLIZUMAB
     Indication: Crohn^s disease
  2. VEDOLIZUMAB [Suspect]
     Active Substance: VEDOLIZUMAB
  3. PANTOPRAZOLE SODIUM [Suspect]
     Active Substance: PANTOPRAZOLE SODIUM
     Indication: Product used for unknown indication
  4. Cortiment [Concomitant]
     Dosage: 9 MILLIGRAM, QD
     Dates: start: 202502
  5. TOPIRAMATE [Concomitant]
     Active Substance: TOPIRAMATE
  6. DILTIAZEM [Concomitant]
     Active Substance: DILTIAZEM
  7. TELMISARTAN [Concomitant]
     Active Substance: TELMISARTAN
  8. SYNTHROID [Concomitant]
     Active Substance: LEVOTHYROXINE SODIUM
  9. DULOXETINE [Concomitant]
     Active Substance: DULOXETINE
  10. CLONAZEPAM [Concomitant]
     Active Substance: CLONAZEPAM
  11. FERAMAX [Concomitant]
     Active Substance: IRON\POLYSACCHARIDES
  12. TIAZAC [Concomitant]
     Active Substance: DILTIAZEM HYDROCHLORIDE
  13. PERCOCET [Concomitant]
     Active Substance: ACETAMINOPHEN\OXYCODONE HYDROCHLORIDE
  14. MELATONIN [Concomitant]
     Active Substance: MELATONIN
  15. APIXABAN [Concomitant]
     Active Substance: APIXABAN

REACTIONS (18)
  - Abdominal abscess [Unknown]
  - Haematochezia [Recovering/Resolving]
  - Carotid artery occlusion [Unknown]
  - Cerebrovascular accident [Unknown]
  - Diarrhoea [Unknown]
  - Haemorrhoids [Unknown]
  - Pain [Unknown]
  - Stress [Unknown]
  - Product dose omission issue [Unknown]
  - Myalgia [Unknown]
  - Haemoglobin decreased [Unknown]
  - Neck pain [Unknown]
  - Malaise [Not Recovered/Not Resolved]
  - Pain [Unknown]
  - Asthenia [Unknown]
  - Blood pressure increased [Unknown]
  - Nausea [Unknown]
  - Headache [Unknown]
